FAERS Safety Report 10966485 (Version 1)
Quarter: 2015Q1

REPORT INFORMATION
  Report Type: Spontaneous
  Country: US (occurrence: None)
  Receive Date: 20150327
  Receipt Date: 20150327
  Transmission Date: 20150721
  Serious: No
  Sender: FDA-Public Use
  Company Number: None

PATIENT
  Age: 50 Year
  Sex: Female
  Weight: 72.58 kg

DRUGS (1)
  1. LATISSE [Suspect]
     Active Substance: BIMATOPROST
     Indication: GROWTH OF EYELASHES
     Dosage: ONCE DROP  ONCE DAILY  BRUSH ON EYELID

REACTIONS (2)
  - Eyelid cyst [None]
  - Dermal cyst [None]

NARRATIVE: CASE EVENT DATE: 20140228
